FAERS Safety Report 4303100-X (Version None)
Quarter: 2004Q1

REPORT INFORMATION
  Report Type: 
  Country: None (occurrence: None)
  Receive Date: 20040224
  Receipt Date: 20031128
  Transmission Date: 20041129
  Serious: Yes (Other)
  Sender: FDA-Public Use
  Company Number: JP-ROCHE-353192

PATIENT
  Age: 62 Year
  Sex: Female
  Weight: 52 kg

DRUGS (10)
  1. XELODA [Suspect]
     Indication: BREAST CANCER
     Route: 048
     Dates: start: 20031030, end: 20031112
  2. FAMOTIDINE [Concomitant]
  3. MORPHINE [Concomitant]
  4. NIFEDIPINE [Concomitant]
  5. DOXAZOSIN MESYLATE [Concomitant]
  6. ALLOPURINOL [Concomitant]
  7. HYDANTOL [Concomitant]
  8. BUFFERIN [Concomitant]
  9. IFENPRODIL [Concomitant]
  10. ANASTROZOLE [Concomitant]

REACTIONS (4)
  - OPTIC ATROPHY [None]
  - TUMOUR MARKER INCREASED [None]
  - VISION BLURRED [None]
  - VISUAL ACUITY REDUCED [None]
